FAERS Safety Report 10205303 (Version 1)
Quarter: 2014Q2

REPORT INFORMATION
  Report Type: Spontaneous
  Country: US (occurrence: US)
  Receive Date: 20140529
  Receipt Date: 20140529
  Transmission Date: 20141212
  Serious: No
  Sender: FDA-Public Use
  Company Number: US-SA-2014SA038957

PATIENT
  Age: 68 Year
  Sex: Female

DRUGS (4)
  1. SOLOSTAR [Suspect]
     Indication: DEVICE THERAPY
     Dosage: TREATMENT START DATE: 3-4 YEARS AGO
  2. SOLOSTAR [Suspect]
     Indication: DEVICE THERAPY
     Dosage: TREATMENT START DATE: 3-4 YEARS AGO
  3. LANTUS SOLOSTAR [Suspect]
     Indication: TYPE 2 DIABETES MELLITUS
     Dosage: TREATMENT START DATE: 3-4 YEARS AGO DOSE:55 UNIT(S)
     Route: 065
  4. LANTUS SOLOSTAR [Suspect]
     Indication: TYPE 2 DIABETES MELLITUS
     Dosage: TREATMENT START DATE: 3-4 YEARS AGO DOSE:55 UNIT(S)
     Route: 065

REACTIONS (5)
  - Blood glucose decreased [Unknown]
  - Injection site haemorrhage [Unknown]
  - Injection site pain [Unknown]
  - Wrong technique in drug usage process [Unknown]
  - Injection site pain [Unknown]
